FAERS Safety Report 6831168-5 (Version None)
Quarter: 2010Q3

REPORT INFORMATION
  Report Type: 
  Country: None (occurrence: None)
  Receive Date: 20100709
  Receipt Date: 20100709
  Transmission Date: 20110219
  Serious: Yes (Other)
  Sender: FDA-Public Use
  Company Number: None

PATIENT
  Age: 38 Year
  Sex: Female
  Weight: 62.1428 kg

DRUGS (1)
  1. MIRENA [Suspect]
     Indication: CONTRACEPTION
     Dosage: 1 EVERYB 5 YRS INTRA-UTERINE
     Route: 015
     Dates: start: 20070201, end: 20100710

REACTIONS (5)
  - BIOPSY BREAST [None]
  - DEPRESSION [None]
  - INSOMNIA [None]
  - SLEEP DISORDER [None]
  - WEIGHT INCREASED [None]
